FAERS Safety Report 22153727 (Version 2)
Quarter: 2023Q1

REPORT INFORMATION
  Report Type: Report from Study
  Country: FR (occurrence: None)
  Receive Date: 20230330
  Receipt Date: 20230331
  Transmission Date: 20230417
  Serious: Yes (Other)
  Sender: FDA-Public Use
  Company Number: FR-ABBVIE-4189000

PATIENT
  Age: 74 Year
  Sex: Female

DRUGS (3)
  1. STALEVO [Suspect]
     Active Substance: CARBIDOPA\ENTACAPONE\LEVODOPA
     Indication: Product used for unknown indication
     Route: 065
  2. CARBIDOPA\LEVODOPA [Suspect]
     Active Substance: CARBIDOPA\LEVODOPA
     Indication: Parkinson^s disease
     Dosage: SINGLE-USE CASSETTE, MORNING DOSE: 10ML, CONTINUOUS FLOW RATE (FROM 06:00 AM TO 06:00 PM): 1.9 ML/H,
     Route: 065
     Dates: start: 20190807
  3. ALPRAZOLAM [Concomitant]
     Active Substance: ALPRAZOLAM
     Route: 065

REACTIONS (4)
  - Drug abuse [Unknown]
  - Muscle rigidity [Unknown]
  - Bradykinesia [Unknown]
  - Pain [Unknown]

NARRATIVE: CASE EVENT DATE: 20221001
